FAERS Safety Report 9229657 (Version 1)
Quarter: 2013Q2

REPORT INFORMATION
  Report Type: Report from Study
  Country: US (occurrence: US)
  Receive Date: 20130415
  Receipt Date: 20130415
  Transmission Date: 20140414
  Serious: No
  Sender: FDA-Public Use
  Company Number: US-009507513-2009-198658-NL

PATIENT
  Age: 30 Year
  Sex: Female
  Weight: 58.96 kg

DRUGS (1)
  1. IMPLANON [Suspect]
     Indication: CONTRACEPTION
     Dosage: EVERY 3 YEARS
     Route: 059
     Dates: start: 20080630, end: 200809

REACTIONS (4)
  - Metrorrhagia [Recovered/Resolved]
  - Headache [Recovered/Resolved]
  - Mood swings [Recovered/Resolved]
  - Metrorrhagia [Recovered/Resolved]
